FAERS Safety Report 13059293 (Version 1)
Quarter: 2016Q4

REPORT INFORMATION
  Report Type: Spontaneous
  Country: US (occurrence: US)
  Receive Date: 20161223
  Receipt Date: 20161223
  Transmission Date: 20170207
  Serious: No
  Sender: FDA-Public Use
  Company Number: US-BAUSCH-BL-2016-021253

PATIENT
  Sex: Female

DRUGS (1)
  1. XENAZINE [Suspect]
     Active Substance: TETRABENAZINE
     Indication: HUNTINGTON^S DISEASE
     Dosage: 1.5 TABLETS AT 7PM, AND TAKE 1 TABLET AT 2:00PM, AND 1.5 TABLETS AT 11:00PM
     Route: 048
     Dates: start: 200911

REACTIONS (2)
  - No adverse event [Unknown]
  - Drug dose omission [Unknown]
